FAERS Safety Report 10160325 (Version 1)
Quarter: 2014Q2

REPORT INFORMATION
  Report Type: Spontaneous
  Country: US (occurrence: US)
  Receive Date: 20140508
  Receipt Date: 20140508
  Transmission Date: 20141212
  Serious: Yes (Other)
  Sender: FDA-Public Use
  Company Number: US-PFIZER INC-2014122986

PATIENT
  Age: 72 Year
  Sex: Female
  Weight: 58.05 kg

DRUGS (2)
  1. LIPITOR [Suspect]
     Indication: BLOOD CHOLESTEROL INCREASED
     Dosage: 40 MG, DAILY
  2. GLUCOVANCE [Concomitant]
     Indication: DIABETES MELLITUS
     Dosage: [GLIBENCLAMIDE 5MG/ METFORMIN HYDROCHLORIDE 500 MG], 2X/DAY

REACTIONS (4)
  - Pneumonia [Unknown]
  - Diabetes mellitus [Unknown]
  - Nasopharyngitis [Unknown]
  - Cough [Unknown]
